FAERS Safety Report 21111594 (Version 1)
Quarter: 2022Q3

REPORT INFORMATION
  Report Type: Spontaneous
  Country: ES (occurrence: ES)
  Receive Date: 20220721
  Receipt Date: 20220721
  Transmission Date: 20221027
  Serious: Yes (Death)
  Sender: FDA-Public Use
  Company Number: ES-SHIONOGI, INC-2022000683

PATIENT
  Age: 49 Year
  Sex: Male

DRUGS (25)
  1. FETROJA [Suspect]
     Active Substance: CEFIDEROCOL SULFATE TOSYLATE
     Indication: Pathogen resistance
     Dosage: 2 G, 8 HOUR
     Route: 065
  2. FETROJA [Suspect]
     Active Substance: CEFIDEROCOL SULFATE TOSYLATE
     Indication: Acinetobacter infection
  3. FETROJA [Suspect]
     Active Substance: CEFIDEROCOL SULFATE TOSYLATE
     Indication: Pneumonia
  4. FETROJA [Suspect]
     Active Substance: CEFIDEROCOL SULFATE TOSYLATE
     Indication: Bacterial infection
  5. FETROJA [Suspect]
     Active Substance: CEFIDEROCOL SULFATE TOSYLATE
     Indication: Multiple-drug resistance
  6. CEFEPIME [Suspect]
     Active Substance: CEFEPIME HYDROCHLORIDE
     Indication: Pathogen resistance
     Dosage: UNK
     Route: 042
  7. CEFEPIME [Suspect]
     Active Substance: CEFEPIME HYDROCHLORIDE
     Indication: Acinetobacter infection
  8. CEFEPIME [Suspect]
     Active Substance: CEFEPIME HYDROCHLORIDE
     Indication: Pneumonia
  9. CEFEPIME [Suspect]
     Active Substance: CEFEPIME HYDROCHLORIDE
     Indication: Bacterial infection
  10. CEFEPIME [Suspect]
     Active Substance: CEFEPIME HYDROCHLORIDE
     Indication: Multiple-drug resistance
  11. IMIPENEM [Suspect]
     Active Substance: IMIPENEM
     Indication: Pathogen resistance
     Dosage: UNK
     Route: 065
  12. IMIPENEM [Suspect]
     Active Substance: IMIPENEM
     Indication: Acinetobacter infection
  13. IMIPENEM [Suspect]
     Active Substance: IMIPENEM
     Indication: Pneumonia
  14. IMIPENEM [Suspect]
     Active Substance: IMIPENEM
     Indication: Bacterial infection
  15. IMIPENEM [Suspect]
     Active Substance: IMIPENEM
     Indication: Multiple-drug resistance
  16. TIGECYCLINE [Suspect]
     Active Substance: TIGECYCLINE
     Indication: Pathogen resistance
     Dosage: UNK
     Route: 065
  17. TIGECYCLINE [Suspect]
     Active Substance: TIGECYCLINE
     Indication: Acinetobacter infection
  18. TIGECYCLINE [Suspect]
     Active Substance: TIGECYCLINE
     Indication: Pneumonia
  19. TIGECYCLINE [Suspect]
     Active Substance: TIGECYCLINE
     Indication: Bacterial infection
  20. TIGECYCLINE [Suspect]
     Active Substance: TIGECYCLINE
     Indication: Multiple-drug resistance
  21. COLISTIN [Suspect]
     Active Substance: COLISTIN
     Indication: Pathogen resistance
     Dosage: UNK
  22. COLISTIN [Suspect]
     Active Substance: COLISTIN
     Indication: Acinetobacter infection
  23. COLISTIN [Suspect]
     Active Substance: COLISTIN
     Indication: Pneumonia
  24. COLISTIN [Suspect]
     Active Substance: COLISTIN
     Indication: Bacterial infection
  25. COLISTIN [Suspect]
     Active Substance: COLISTIN
     Indication: Multiple-drug resistance

REACTIONS (1)
  - Drug ineffective [Fatal]
